FAERS Safety Report 9758568 (Version 1)
Quarter: 2013Q4

REPORT INFORMATION
  Report Type: Spontaneous
  Country: US (occurrence: None)
  Receive Date: 20131216
  Receipt Date: 20131216
  Transmission Date: 20140711
  Serious: Yes (Other)
  Sender: FDA-Public Use
  Company Number: 2012110018(0)

PATIENT
  Sex: Female

DRUGS (1)
  1. SOMA [Suspect]
     Dosage: 2450 MG (2450 MG, 1 IN 1 D), ORAL

REACTIONS (1)
  - Drug dependence [None]
